FAERS Safety Report 6170461-9 (Version None)
Quarter: 2009Q2

REPORT INFORMATION
  Report Type: 
  Country: None (occurrence: None)
  Receive Date: 20090428
  Receipt Date: 20090417
  Transmission Date: 20091009
  Serious: Yes (Death, Other)
  Sender: FDA-Public Use
  Company Number: US-PFIZER INC-2009179969

PATIENT
  Sex: Male
  Weight: 88.6 kg

DRUGS (8)
  1. SUTENT [Suspect]
     Indication: RENAL CELL CARCINOMA
     Dosage: 50 MG, UNK
     Dates: end: 20090107
  2. MEGACE [Concomitant]
  3. DECADRON [Concomitant]
  4. ZANTAC [Concomitant]
  5. CELEXA [Concomitant]
  6. HERBAL PREPARATION [Concomitant]
  7. IBUPROFEN [Concomitant]
  8. OXYCODONE [Concomitant]

REACTIONS (3)
  - DISEASE PROGRESSION [None]
  - FATIGUE [None]
  - RENAL CELL CARCINOMA [None]
